FAERS Safety Report 15226371 (Version 1)
Quarter: 2018Q3

REPORT INFORMATION
  Report Type: Spontaneous
  Country: US (occurrence: US)
  Receive Date: 20180801
  Receipt Date: 20180801
  Transmission Date: 20181010
  Serious: No
  Sender: FDA-Public Use
  Company Number: US-BEH-2018093229

PATIENT
  Age: 68 Year
  Sex: Female

DRUGS (5)
  1. TRAMADOL. [Concomitant]
     Active Substance: TRAMADOL
  2. FENOFIBRATE. [Concomitant]
     Active Substance: FENOFIBRATE
  3. DIAZEPAM. [Concomitant]
     Active Substance: DIAZEPAM
  4. BACLOFEN. [Concomitant]
     Active Substance: BACLOFEN
  5. PRIVIGEN [Suspect]
     Active Substance: HUMAN IMMUNOGLOBULIN G
     Indication: MULTIPLE SCLEROSIS
     Dosage: 55 G, QMT
     Route: 042
     Dates: start: 201807

REACTIONS (2)
  - Arthralgia [Not Recovered/Not Resolved]
  - Joint effusion [Not Recovered/Not Resolved]
